FAERS Safety Report 19544609 (Version 1)
Quarter: 2021Q3

REPORT INFORMATION
  Report Type: Other
  Country: US (occurrence: US)
  Receive Date: 20210713
  Receipt Date: 20210713
  Transmission Date: 20211014
  Serious: Yes (Death, Hospitalization)
  Sender: FDA-Public Use
  Company Number: US-ROCHE-2864137

PATIENT
  Age: 80 Year
  Sex: Male

DRUGS (1)
  1. ALTEPLASE. [Suspect]
     Active Substance: ALTEPLASE
     Indication: ISCHAEMIC STROKE
     Dosage: 70 MG (0.9 MG/KG TOTAL DOSE, 7 MG BOLUS PLUS 63 MG SLOW INFUSION) IV?RTPA OVER 1 H.
     Route: 042

REACTIONS (4)
  - Epistaxis [Unknown]
  - COVID-19 [Unknown]
  - Death [Fatal]
  - Condition aggravated [Unknown]
